FAERS Safety Report 4305273-1 (Version None)
Quarter: 2004Q1

REPORT INFORMATION
  Report Type: 
  Country: None (occurrence: None)
  Receive Date: 20040226
  Receipt Date: 20030123
  Transmission Date: 20041129
  Serious: No
  Sender: FDA-Public Use
  Company Number: US-BRISTOL-MYERS SQUIBB COMPANY-12165478

PATIENT
  Age: 55 Year
  Sex: Female
  Weight: 69 kg

DRUGS (12)
  1. TAXOL [Suspect]
     Indication: BREAST CANCER
     Route: 042
     Dates: start: 20021026, end: 20021026
  2. ZOFRAN [Concomitant]
     Indication: PREMEDICATION
  3. TAGAMET [Concomitant]
     Indication: PREMEDICATION
  4. BENADRYL [Concomitant]
     Indication: PREMEDICATION
  5. DECADRON [Concomitant]
     Indication: PREMEDICATION
  6. SYNTHROID [Concomitant]
  7. MULTI-VITAMIN [Concomitant]
  8. PERCOCET [Concomitant]
  9. CELEBREX [Concomitant]
  10. AMBIEN [Concomitant]
  11. SENOKOT [Concomitant]
  12. VALIUM [Concomitant]

REACTIONS (1)
  - NAIL DISORDER [None]
